FAERS Safety Report 7306228-5 (Version None)
Quarter: 2011Q1

REPORT INFORMATION
  Report Type: 
  Country: None (occurrence: None)
  Receive Date: 20110222
  Receipt Date: 20110216
  Transmission Date: 20110831
  Serious: Yes (Life-Threatening, Hospitalization)
  Sender: FDA-Public Use
  Company Number: PHHY2011GB12318

PATIENT
  Age: 61 Year
  Sex: Female

DRUGS (9)
  1. RAMIPRIL [Suspect]
  2. PREDNISOLONE [Concomitant]
  3. EXEMESTANE [Suspect]
     Indication: BREAST CANCER
     Dosage: 25 MG, UNK
     Route: 048
     Dates: start: 20100101
  4. AMOXICILLIN [Concomitant]
  5. ANASTROZOLE [Suspect]
     Indication: BREAST CANCER
     Dosage: 1 MG, UNK
     Route: 048
     Dates: end: 20100101
  6. ATORVASTATIN [Suspect]
  7. LERCANIDIPINE [Suspect]
  8. BENDROFLUMETHIAZIDE [Suspect]
     Indication: HYPERTENSION
     Dosage: 2.5 MG, UNK
  9. ATROVENT [Suspect]

REACTIONS (1)
  - HYPONATRAEMIA [None]
